FAERS Safety Report 9826430 (Version 1)
Quarter: 2014Q1

REPORT INFORMATION
  Report Type: Spontaneous
  Country: US (occurrence: US)
  Receive Date: 20140117
  Receipt Date: 20140117
  Transmission Date: 20141002
  Serious: No
  Sender: FDA-Public Use
  Company Number: US-BIOGENIDEC-2014BI001732

PATIENT
  Sex: Male

DRUGS (17)
  1. TECFIDERA [Suspect]
     Indication: MULTIPLE SCLEROSIS
     Route: 048
     Dates: start: 201311, end: 201311
  2. ASPIRIN EC [Concomitant]
  3. COQ10 SG 100 [Concomitant]
  4. CRESTOR [Concomitant]
  5. DILANTIN [Concomitant]
  6. ECOTRIN [Concomitant]
  7. FISH OIL 340-100 [Concomitant]
  8. MAGNESIUM OXIDE [Concomitant]
  9. METOPROLOL SUCCINATE [Concomitant]
  10. NITROFURANTOIN [Concomitant]
  11. PAIN RELIEF [Concomitant]
  12. PHENOBARBITAL [Concomitant]
  13. PROVIGIL [Concomitant]
  14. SYNTHROID [Concomitant]
  15. SYNTHROID [Concomitant]
  16. TIZANIDINE HCL [Concomitant]
  17. VITAMIN D3 [Concomitant]

REACTIONS (1)
  - Lung disorder [Unknown]
